FAERS Safety Report 8181183-7 (Version None)
Quarter: 2012Q1

REPORT INFORMATION
  Report Type: 
  Country: None (occurrence: None)
  Receive Date: 20120302
  Receipt Date: 20120224
  Transmission Date: 20120608
  Serious: Yes (Other)
  Sender: FDA-Public Use
  Company Number: MX-GLAXOSMITHKLINE-A0968256A

PATIENT
  Sex: Female

DRUGS (1)
  1. TYKERB [Suspect]
     Indication: METASTASES TO MENINGES
     Dosage: 250MG PER DAY
     Route: 048
     Dates: start: 20111201

REACTIONS (1)
  - SUBDURAL HAEMATOMA [None]
